FAERS Safety Report 19624506 (Version 2)
Quarter: 2021Q3

REPORT INFORMATION
  Report Type: Spontaneous
  Country: FI (occurrence: FI)
  Receive Date: 20210728
  Receipt Date: 20210902
  Transmission Date: 20211014
  Serious: Yes (Other)
  Sender: FDA-Public Use
  Company Number: FI-FERRINGPH-2021FE04821

PATIENT
  Age: 53 Year
  Sex: Female

DRUGS (1)
  1. PICOPREP [Suspect]
     Active Substance: ANHYDROUS CITRIC ACID\MAGNESIUM OXIDE\SODIUM PICOSULFATE
     Indication: BOWEL PREPARATION
     Dosage: 4 DF (SACHETS)
     Route: 048
     Dates: start: 20170326, end: 20170328

REACTIONS (4)
  - Gastrointestinal pain [Unknown]
  - Off label use [Recovered/Resolved]
  - Dyspnoea [Unknown]
  - Overdose [Recovered/Resolved]

NARRATIVE: CASE EVENT DATE: 201703
